FAERS Safety Report 4283795-X (Version None)
Quarter: 2004Q1

REPORT INFORMATION
  Report Type: 
  Country: None (occurrence: None)
  Receive Date: 20040115
  Receipt Date: 20030424
  Transmission Date: 20041129
  Serious: Yes (Other)
  Sender: FDA-Public Use
  Company Number: NSADSS2003019530

PATIENT
  Sex: Female

DRUGS (1)
  1. DOXIL [Suspect]
     Indication: UTERINE CANCER
     Dosage: INTRAVENOUS DRIP
     Route: 041
     Dates: start: 20030422, end: 20030422

REACTIONS (3)
  - DYSPNOEA [None]
  - FLUSHING [None]
  - HYPERSENSITIVITY [None]
